FAERS Safety Report 9735610 (Version 1)
Quarter: 2013Q4

REPORT INFORMATION
  Report Type: Spontaneous
  Country: CH (occurrence: CH)
  Receive Date: 20131206
  Receipt Date: 20131206
  Transmission Date: 20140711
  Serious: Yes (Other)
  Sender: FDA-Public Use
  Company Number: PHHY2013CH141048

PATIENT
  Age: 37 Year
  Sex: Female

DRUGS (14)
  1. DIOVAN [Suspect]
     Indication: ESSENTIAL HYPERTENSION
     Dosage: 1 DF, 160 MG
     Route: 048
     Dates: end: 2013
  2. ALUCOL [Suspect]
     Dosage: 20 MG, UNK
     Route: 048
     Dates: start: 20130709
  3. ADALAT [Suspect]
     Indication: ESSENTIAL HYPERTENSION
     Dosage: 60 MG, UNK
     Route: 048
     Dates: start: 2013
  4. TRANDATE [Suspect]
     Indication: HYPERTENSION
     Dosage: 100 MG, UNK
     Dates: start: 20130703
  5. FRAGMIN [Suspect]
     Dosage: 5000 IU, UNK
     Route: 058
     Dates: start: 20130702
  6. MEPHAMESONE [Suspect]
     Dosage: UNK UKN, UNK
     Route: 040
     Dates: start: 20130702, end: 20130703
  7. ELOCOM [Suspect]
     Indication: DERMATITIS
     Dosage: UNK UKN, UNK
     Route: 061
     Dates: start: 20130702
  8. HUMULUS LUPULUS [Suspect]
     Dosage: UNK UKN, UNK
     Route: 048
     Dates: start: 20130710
  9. ELEVIT PRONATAL [Concomitant]
     Dosage: UNK UKN, UNK
  10. VALPROINSAURE CHRONO [Concomitant]
     Dosage: UNK UKN, UNK
  11. FALCIFOR//FOLIC ACID [Concomitant]
     Dosage: UNK UKN, UNK
  12. INSULIN [Concomitant]
     Dosage: UNK UKN, UNK
  13. SEROQUEL [Concomitant]
     Indication: BIPOLAR DISORDER
     Dosage: UNK UKN, UNK
  14. METOPROLOL [Concomitant]
     Indication: ECLAMPSIA
     Dosage: UNK UKN, UNK

REACTIONS (2)
  - Premature labour [Unknown]
  - Maternal exposure during pregnancy [Unknown]
